FAERS Safety Report 7714705-8 (Version None)
Quarter: 2011Q3

REPORT INFORMATION
  Report Type: 
  Country: None (occurrence: None)
  Receive Date: 20110805
  Receipt Date: 20110115
  Transmission Date: 20111222
  Serious: Yes (Other)
  Sender: FDA-Public Use
  Company Number: 791296

PATIENT
  Age: 23 Month
  Sex: Male

DRUGS (2)
  1. METHOTREXATE [Suspect]
     Indication: LEUKAEMIA
     Dosage: 100 MG/M2, BOLUS ; 4.5 G/M2, X 1 DOSE
     Dates: start: 20101227, end: 20101228
  2. METHOTREXATE [Suspect]
     Indication: LEUKAEMIA
     Dosage: 100 MG/M2, BOLUS ; 4.5 G/M2, X 1 DOSE
     Dates: start: 20101227, end: 20101227

REACTIONS (3)
  - DRUG CLEARANCE DECREASED [None]
  - BLOOD CREATININE INCREASED [None]
  - DRUG LEVEL INCREASED [None]
